FAERS Safety Report 14665242 (Version 1)
Quarter: 2018Q1

REPORT INFORMATION
  Report Type: Spontaneous
  Country: US (occurrence: US)
  Receive Date: 20180321
  Receipt Date: 20180321
  Transmission Date: 20180509
  Serious: Yes (Other)
  Sender: FDA-Public Use
  Company Number: PHHY2018US040011

PATIENT
  Age: 33 Year
  Sex: Female

DRUGS (1)
  1. AMPICILLIN [Suspect]
     Active Substance: AMPICILLIN
     Indication: URINARY TRACT INFECTION
     Dosage: UNK
     Route: 065

REACTIONS (9)
  - Rectal tenesmus [Unknown]
  - Abdominal pain lower [Unknown]
  - Mucosal ulceration [Unknown]
  - Intestinal congestion [Unknown]
  - Enterocolitis haemorrhagic [Unknown]
  - Diarrhoea haemorrhagic [Unknown]
  - Defaecation urgency [Unknown]
  - Gastrointestinal mucosa hyperaemia [Unknown]
  - Klebsiella infection [Unknown]
